FAERS Safety Report 7199351-X (Version None)
Quarter: 2010Q4

REPORT INFORMATION
  Report Type: 
  Country: None (occurrence: None)
  Receive Date: 20101228
  Receipt Date: 20101221
  Transmission Date: 20110411
  Serious: Yes (Hospitalization)
  Sender: FDA-Public Use
  Company Number: US-ELI_LILLY_AND_COMPANY-US201010002465

PATIENT
  Sex: Female
  Weight: 64.4 kg

DRUGS (6)
  1. GEMCITABINE HCL [Suspect]
     Indication: NON-SMALL CELL LUNG CANCER
     Dosage: 1250 MG/M2, ON DAY 1 AND DAY 8 EVERY 21 DAYS
     Route: 042
     Dates: start: 20101001, end: 20101001
  2. GEMCITABINE HCL [Suspect]
     Dosage: 1250 MG/M2, ON DAY 1 AND DAY 8 EVERY 21 DAYS
     Route: 042
     Dates: start: 20101022
  3. CISPLATIN [Suspect]
     Indication: NON-SMALL CELL LUNG CANCER
     Dosage: 75 MG/M2, EVERY 21 DAYS
     Route: 042
     Dates: start: 20101001
  4. LEVOXYL [Concomitant]
     Dosage: 0.1 U, DAILY (1/D)
  5. OXYCODONE [Concomitant]
     Dosage: 5 MG, AS NEEDED
  6. NAPROXEN /00256201/ [Concomitant]
     Dosage: 375 U, 2/D
     Route: 048

REACTIONS (1)
  - THROMBOPHLEBITIS SUPERFICIAL [None]
